FAERS Safety Report 20905709 (Version 2)
Quarter: 2022Q3

REPORT INFORMATION
  Report Type: Other
  Country: US (occurrence: US)
  Receive Date: 20220602
  Receipt Date: 20220720
  Transmission Date: 20221027
  Serious: Yes (Hospitalization, Other)
  Sender: FDA-Public Use
  Company Number: US-Covis Pharma GmbH-2022COV01670

PATIENT
  Age: 0 Year
  Sex: Male
  Weight: 0.706 kg

DRUGS (2)
  1. MAKENA [Suspect]
     Active Substance: HYDROXYPROGESTERONE CAPROATE
     Indication: Foetal exposure during pregnancy
     Route: 064
     Dates: start: 20220328
  2. MAKENA [Suspect]
     Active Substance: HYDROXYPROGESTERONE CAPROATE
     Indication: Premature delivery

REACTIONS (6)
  - Neonatal respiratory distress [Unknown]
  - Neonatal pneumothorax [Unknown]
  - Anaemia neonatal [Unknown]
  - Premature baby [Unknown]
  - Sepsis neonatal [Unknown]
  - Intraventricular haemorrhage neonatal [Unknown]

NARRATIVE: CASE EVENT DATE: 20220522
